FAERS Safety Report 5657833-3 (Version None)
Quarter: 2008Q1

REPORT INFORMATION
  Report Type: 
  Country: None (occurrence: None)
  Receive Date: 20080310
  Receipt Date: 20071113
  Transmission Date: 20080703
  Serious: No
  Sender: FDA-Public Use
  Company Number: US-ASTRAZENECA-2007UW26226

PATIENT
  Sex: Female

DRUGS (1)
  1. ZESTRIL [Suspect]

REACTIONS (2)
  - ANGER [None]
  - CRYING [None]
